FAERS Safety Report 6123192-5 (Version None)
Quarter: 2009Q1

REPORT INFORMATION
  Report Type: 
  Country: None (occurrence: None)
  Receive Date: 20090318
  Receipt Date: 20090305
  Transmission Date: 20090719
  Serious: Yes (Other)
  Sender: FDA-Public Use
  Company Number: PHHY2009GB04799

PATIENT
  Sex: Female

DRUGS (8)
  1. CLOZARIL [Suspect]
     Indication: SCHIZOPHRENIA
     Dosage: 900 MG, QD
     Route: 048
     Dates: start: 19960411
  2. CITALOPRAM HYDROBROMIDE [Concomitant]
     Indication: DEPRESSION
     Dosage: 60 MG DAILY
     Route: 048
  3. SULPIRIDE [Concomitant]
     Dosage: 200 MG DAILY
     Route: 048
  4. METFORMIN HCL [Concomitant]
     Indication: DIABETES MELLITUS
     Dosage: 500 MG, BID
     Route: 048
  5. INSULIN [Concomitant]
     Indication: DIABETES MELLITUS
     Dosage: UNK
     Route: 058
  6. DIPYRIDAMOLE [Concomitant]
     Indication: PROPHYLAXIS
     Route: 048
  7. OXYCODEINE [Concomitant]
     Indication: ANALGESIA
     Route: 048
  8. ASPIRIN [Concomitant]

REACTIONS (7)
  - ASTHENIA [None]
  - CEREBROVASCULAR ACCIDENT [None]
  - GENERAL PHYSICAL HEALTH DETERIORATION [None]
  - HAEMOGLOBIN DECREASED [None]
  - LUNG NEOPLASM [None]
  - PLATELET COUNT DECREASED [None]
  - RED BLOOD CELL COUNT DECREASED [None]
